FAERS Safety Report 11238820 (Version 3)
Quarter: 2016Q1

REPORT INFORMATION
  Report Type: Report from Study
  Country: DE (occurrence: DE)
  Receive Date: 20150706
  Receipt Date: 20160128
  Transmission Date: 20160525
  Serious: Yes (Hospitalization)
  Sender: FDA-Public Use
  Company Number: DE-ROCHE-1603313

PATIENT
  Age: 46 Year
  Sex: Female

DRUGS (12)
  1. METHOTREXATE [Suspect]
     Active Substance: METHOTREXATE
     Route: 065
  2. METHOTREXATE [Suspect]
     Active Substance: METHOTREXATE
     Indication: RHEUMATOID ARTHRITIS
     Route: 065
  3. SPIROBETA [Concomitant]
     Active Substance: SPIRONOLACTONE
  4. DECOSTRIOL [Concomitant]
     Active Substance: CALCITRIOL
  5. CALCIVIT D [Concomitant]
  6. CLIOVELLE [Concomitant]
  7. RITUXIMAB [Suspect]
     Active Substance: RITUXIMAB
     Indication: RHEUMATOID ARTHRITIS
     Dosage: ON 11/FEB/2015, RECEIVED LAST DOSE PRIOR TO MULTIPLE SCLEROSIS RELAPSE.
     Route: 042
  8. RASILEZ [Concomitant]
     Active Substance: ALISKIREN
  9. CLIOVELLE [Concomitant]
  10. FAMPYRA [Concomitant]
     Active Substance: DALFAMPRIDINE
  11. FOLIC ACID. [Concomitant]
     Active Substance: FOLIC ACID
  12. METHOTREXATE [Suspect]
     Active Substance: METHOTREXATE
     Route: 065

REACTIONS (2)
  - Multiple sclerosis relapse [Recovered/Resolved]
  - Influenza like illness [Unknown]

NARRATIVE: CASE EVENT DATE: 20150304
